FAERS Safety Report 9416468 (Version 2)
Quarter: 2013Q3

REPORT INFORMATION
  Report Type: Report from Study
  Country: BR (occurrence: BR)
  Receive Date: 20130724
  Receipt Date: 20130829
  Transmission Date: 20140515
  Serious: Yes (Life-Threatening, Hospitalization, Other)
  Sender: FDA-Public Use
  Company Number: PHHY2013BR078292

PATIENT
  Age: 61 Year
  Sex: Female
  Weight: 67 kg

DRUGS (12)
  1. DIOVAN [Suspect]
     Indication: HYPERTENSION
     Dosage: 80 MG, BID
     Route: 048
     Dates: start: 201205, end: 201306
  2. DIOVAN [Suspect]
     Dosage: 80 MG, TID
     Route: 048
     Dates: start: 201205, end: 201305
  3. DIOVAN [Suspect]
     Dosage: 160 MG, BID
     Route: 048
     Dates: start: 201305
  4. LANTUS [Concomitant]
     Indication: DIABETES MELLITUS
     Dosage: 14 UNITS EACH APPLICATION
     Dates: start: 2001
  5. VYTORIN [Concomitant]
     Indication: BLOOD CHOLESTEROL ABNORMAL
     Dosage: 1 DF, EVERY NIGHT
     Route: 048
     Dates: start: 2007
  6. EPREX [Concomitant]
     Indication: RED BLOOD CELL ABNORMALITY
     Dosage: 1 DF, TWICE IN EVERY WEEK
     Route: 058
     Dates: start: 2007
  7. LASIX [Concomitant]
     Indication: DIURETIC THERAPY
     Dosage: 2 DF, DAILY
     Route: 048
     Dates: start: 2010
  8. RENALVITE [Concomitant]
     Dosage: 1 DF, DAILY
     Route: 048
     Dates: start: 201205
  9. RENAGEL [Concomitant]
     Indication: BLOOD PHOSPHORUS ABNORMAL
     Dosage: 8 DF, DAILY
     Route: 048
     Dates: start: 2013
  10. TAPAZOL [Concomitant]
     Indication: THYROID DISORDER
     Dosage: 0.5 DF, DAILY
     Dates: start: 2013
  11. BUFERIN [Concomitant]
     Dosage: UNK BEFORE SOMALGIN CARDIO
  12. SOMALGIN [Concomitant]
     Indication: ISCHAEMIC HEART DISEASE PROPHYLAXIS
     Dosage: 1 DF, AFTER LUNCH
     Dates: start: 201304

REACTIONS (14)
  - Cardio-respiratory arrest [Recovered/Resolved]
  - Infarction [Recovered/Resolved]
  - Cardiac disorder [Recovering/Resolving]
  - Arrhythmia [Recovered/Resolved]
  - Osteoporosis [Not Recovered/Not Resolved]
  - Anaemia [Recovering/Resolving]
  - Blood thyroid stimulating hormone abnormal [Not Recovered/Not Resolved]
  - Renal failure [Recovering/Resolving]
  - Renal impairment [Not Recovered/Not Resolved]
  - Blood pressure increased [Recovered/Resolved]
  - Syncope [Recovered/Resolved]
  - Weight decreased [Recovered/Resolved]
  - Insomnia [Recovered/Resolved]
  - Wrong technique in drug usage process [Recovering/Resolving]
